FAERS Safety Report 11418179 (Version 1)
Quarter: 2015Q3

REPORT INFORMATION
  Report Type: Spontaneous
  Country: US (occurrence: US)
  Receive Date: 20150825
  Receipt Date: 20150825
  Transmission Date: 20151125
  Serious: No
  Sender: FDA-Public Use
  Company Number: US-009507513-1508USA010195

PATIENT
  Age: 22 Year
  Sex: Female
  Weight: 81.6 kg

DRUGS (2)
  1. NUVARING [Suspect]
     Active Substance: ETHINYL ESTRADIOL\ETONOGESTREL
     Indication: CONTRACEPTION
     Dosage: ON AND OFF FOR FOUR YEARS
     Route: 067
     Dates: start: 2011, end: 20150729
  2. SERTRALINE HYDROCHLORIDE. [Concomitant]
     Active Substance: SERTRALINE HYDROCHLORIDE

REACTIONS (4)
  - Metrorrhagia [Not Recovered/Not Resolved]
  - Amenorrhoea [Recovered/Resolved]
  - Incorrect drug administration duration [Unknown]
  - Vein discolouration [Not Recovered/Not Resolved]

NARRATIVE: CASE EVENT DATE: 20150807
